FAERS Safety Report 8090653 (Version 5)
Quarter: 2013Q4

REPORT INFORMATION
  Report Type: Spontaneous
  Country: US (occurrence: US)
  Receive Date: 20110815
  Receipt Date: 20131015
  Transmission Date: 20140711
  Serious: Yes (Hospitalization, Other)
  Sender: FDA-Public Use
  Company Number: US-ROCHE-794908

PATIENT
  Age: 65 Year
  Sex: Female
  Weight: 69.92 kg

DRUGS (1)
  1. ACCUTANE [Suspect]
     Indication: ACNE CYSTIC
     Route: 065
     Dates: start: 198305, end: 198309

REACTIONS (9)
  - Crohn^s disease [Unknown]
  - Gastrointestinal fistula [Unknown]
  - Arthralgia [Unknown]
  - Inflammatory bowel disease [Unknown]
  - Abscess intestinal [Unknown]
  - Lower gastrointestinal haemorrhage [Unknown]
  - Rectal polyp [Unknown]
  - Erythema nodosum [Unknown]
  - Arthritis [Unknown]
